FAERS Safety Report 21293628 (Version 1)
Quarter: 2022Q3

REPORT INFORMATION
  Report Type: Spontaneous
  Country: US (occurrence: None)
  Receive Date: 20220905
  Receipt Date: 20220905
  Transmission Date: 20221027
  Serious: No
  Sender: FDA-Public Use
  Company Number: 2022A302080

PATIENT
  Sex: Female

DRUGS (1)
  1. PRILOSEC OTC [Suspect]
     Active Substance: OMEPRAZOLE MAGNESIUM
     Dosage: MEDICATION IS CRUSHED AND DISSOLVED THROUGH A FEEDING TUBE
     Route: 048

REACTIONS (3)
  - Illness [Unknown]
  - Retching [Unknown]
  - Wrong technique in product usage process [Unknown]
